FAERS Safety Report 8143494-0 (Version None)
Quarter: 2012Q1

REPORT INFORMATION
  Report Type: 
  Country: None (occurrence: None)
  Receive Date: 20120217
  Receipt Date: 20120208
  Transmission Date: 20120608
  Serious: Yes (Other)
  Sender: FDA-Public Use
  Company Number: GB-BRISTOL-MYERS SQUIBB COMPANY-16391229

PATIENT
  Age: 74 Year
  Sex: Female

DRUGS (1)
  1. ONGLYZA [Suspect]
     Dates: start: 20100901

REACTIONS (1)
  - NEPHRITIS [None]
